FAERS Safety Report 8363422-2 (Version None)
Quarter: 2012Q2

REPORT INFORMATION
  Report Type: 
  Country: None (occurrence: None)
  Receive Date: 20120516
  Receipt Date: 20120514
  Transmission Date: 20120825
  Serious: Yes (Other)
  Sender: FDA-Public Use
  Company Number: AU-PFIZER INC-2012117174

PATIENT

DRUGS (1)
  1. LIDOCAINE [Suspect]
     Indication: HAEMODIALYSIS

REACTIONS (1)
  - THROMBOSIS IN DEVICE [None]
